FAERS Safety Report 8653510 (Version 4)
Quarter: 2012Q4

REPORT INFORMATION
  Report Type: 
  Country: AU (occurrence: AU)
  Receive Date: 20120708
  Receipt Date: 20121213
  Transmission Date: 20130627
  Serious: Yes (Hospitalization, Other)
  Sender: FDA-Public Use
  Company Number: AU-AMGEN-AUSSP2012041469

PATIENT
  Age: 83 Year
  Sex: Male
  Weight: 80 kg

DRUGS (7)
  1. XGEVA [Suspect]
     Indication: METASTASES TO BONE
     Dosage: 120 mg, one time dose
     Route: 058
     Dates: start: 20120523, end: 20120523
  2. XGEVA [Suspect]
     Indication: BONE NEOPLASM MALIGNANT
  3. CYPROTERONE [Concomitant]
     Indication: PROSTATE CANCER
     Dosage: 50 mg, bid
     Route: 048
  4. LASIX                              /00032601/ [Concomitant]
     Dosage: 60 mg, UNK
     Route: 048
  5. OSTELIN                            /00107901/ [Concomitant]
     Dosage: 25 mg, UNK
     Route: 048
     Dates: start: 2008
  6. CITALOPRAM [Concomitant]
     Indication: ANXIETY
     Dosage: 10 mg, qd
     Route: 048
     Dates: start: 2008
  7. LUCRIN [Concomitant]
     Indication: PROSTATE CANCER
     Dosage: UNK UNK, q3mo
     Route: 058
     Dates: start: 20120525

REACTIONS (9)
  - Device dislocation [Unknown]
  - Hip fracture [Unknown]
  - Urine phosphorus abnormal [Unknown]
  - Blood parathyroid hormone increased [Unknown]
  - Blood alkaline phosphatase increased [Unknown]
  - Gamma-glutamyltransferase increased [Unknown]
  - Haematuria [Unknown]
  - Fall [Unknown]
  - Hypocalcaemia [Unknown]
